FAERS Safety Report 6447799 (Version 18)
Quarter: 2013Q1

REPORT INFORMATION
  Report Type: Spontaneous
  Country: US (occurrence: US)
  Receive Date: 20071024
  Receipt Date: 20130206
  Transmission Date: 20140127
  Serious: Yes (Death, Life-Threatening, Hospitalization, Other)
  Sender: FDA-Public Use
  Company Number: US-JNJFOC-20071003696

PATIENT
  Sex: Male
  Weight: 69 kg

DRUGS (15)
  1. REMICADE [Suspect]
     Indication: INFLAMMATORY BOWEL DISEASE
     Dosage: 19 INFUSIONS ADMINISTERED BETWEEN 10-JUL-2002 AND 7-MAR-2006
     Route: 042
     Dates: start: 20020710, end: 20060307
  2. REMICADE [Suspect]
     Indication: CROHN^S DISEASE
     Dosage: 19 INFUSIONS ADMINISTERED BETWEEN 10-JUL-2002 AND 7-MAR-2006
     Route: 042
     Dates: start: 20020710, end: 20060307
  3. REMICADE [Suspect]
     Indication: COLITIS ULCERATIVE
     Dosage: 19 INFUSIONS ADMINISTERED BETWEEN 10-JUL-2002 AND 7-MAR-2006
     Route: 042
     Dates: start: 20020710, end: 20060307
  4. HUMIRA [Suspect]
     Indication: IRRITABLE BOWEL SYNDROME
     Dates: start: 20061101
  5. HUMIRA [Suspect]
     Indication: IRRITABLE BOWEL SYNDROME
     Dates: start: 20070615
  6. HUMIRA [Suspect]
     Indication: COLITIS ULCERATIVE
     Dates: start: 20070615
  7. HUMIRA [Suspect]
     Indication: COLITIS ULCERATIVE
     Dates: start: 20061101
  8. PURINETHOL [Suspect]
     Indication: INFLAMMATORY BOWEL DISEASE
     Dates: end: 20070401
  9. PURINETHOL [Suspect]
     Indication: INFLAMMATORY BOWEL DISEASE
     Dosage: ALSO REPORTED WITH START DATE OF 01-OCT-1999
     Dates: start: 19990602
  10. PURINETHOL [Suspect]
     Indication: COLITIS ULCERATIVE
     Dates: end: 20070401
  11. PURINETHOL [Suspect]
     Indication: COLITIS ULCERATIVE
     Dosage: ALSO REPORTED WITH START DATE OF 01-OCT-1999
     Dates: start: 19990602
  12. ASACOL [Concomitant]
     Dates: start: 19981015
  13. ASACOL [Concomitant]
     Dates: start: 20070305
  14. PREDNISONE [Concomitant]
     Indication: COLITIS ULCERATIVE
  15. PREDNISONE [Concomitant]
     Indication: INFLAMMATORY BOWEL DISEASE

REACTIONS (1)
  - Hepatosplenic T-cell lymphoma [Fatal]
